FAERS Safety Report 21544564 (Version 4)
Quarter: 2022Q4

REPORT INFORMATION
  Report Type: Spontaneous
  Country: US (occurrence: US)
  Receive Date: 20221102
  Receipt Date: 20221221
  Transmission Date: 20230112
  Serious: Yes (Death, Hospitalization)
  Sender: FDA-Public Use
  Company Number: US-KARYOPHARM-2022KPT001254

PATIENT

DRUGS (13)
  1. XPOVIO [Suspect]
     Active Substance: SELINEXOR
     Indication: Plasma cell myeloma
     Dosage: 40 MG, WEEKLY
     Route: 048
     Dates: start: 20220907, end: 20221025
  2. HYDROMORPHONE [Concomitant]
     Active Substance: HYDROMORPHONE
  3. URSODIOL [Concomitant]
     Active Substance: URSODIOL
  4. ACYCLOVIR [Concomitant]
     Active Substance: ACYCLOVIR
  5. CELECOXIB [Concomitant]
     Active Substance: CELECOXIB
  6. MEPRON [Concomitant]
     Active Substance: ATOVAQUONE
  7. OXYBUTYNIN [Concomitant]
     Active Substance: OXYBUTYNIN
  8. DIVALPROEX SODIUM [Concomitant]
     Active Substance: DIVALPROEX SODIUM
  9. KEPPRA [Concomitant]
     Active Substance: LEVETIRACETAM
  10. FOLIC ACID [Concomitant]
     Active Substance: FOLIC ACID
  11. AMITRIPTYLINE [Concomitant]
     Active Substance: AMITRIPTYLINE
  12. ALBUTEROL SULFATE [Concomitant]
     Active Substance: ALBUTEROL SULFATE
  13. ZOFRAN [Concomitant]
     Active Substance: ONDANSETRON HYDROCHLORIDE

REACTIONS (6)
  - Death [Fatal]
  - Fall [Recovering/Resolving]
  - Diarrhoea [Unknown]
  - Constipation [Unknown]
  - Nausea [Unknown]
  - Fatigue [Not Recovered/Not Resolved]

NARRATIVE: CASE EVENT DATE: 20220101
